FAERS Safety Report 16015818 (Version 2)
Quarter: 2019Q1

REPORT INFORMATION
  Report Type: Report from Study
  Country: JP (occurrence: JP)
  Receive Date: 20190228
  Receipt Date: 20190314
  Transmission Date: 20190418
  Serious: Yes (Death)
  Sender: FDA-Public Use
  Company Number: JP-BAUSCH-BL-2019-006110

PATIENT
  Age: 79 Year
  Sex: Male

DRUGS (6)
  1. PIARLE [Concomitant]
     Indication: HYPERAMMONAEMIA
     Route: 048
     Dates: start: 20171205, end: 20171216
  2. FLUITRAN [Concomitant]
     Active Substance: TRICHLORMETHIAZIDE
     Indication: ASCITES
     Route: 048
     Dates: start: 20171205, end: 20171216
  3. MAGMITT [Concomitant]
     Active Substance: MAGNESIUM OXIDE
     Indication: CONSTIPATION
     Route: 048
     Dates: start: 20171205, end: 20171216
  4. VERAPAMIL HYDROCHLORIDE. [Concomitant]
     Active Substance: VERAPAMIL HYDROCHLORIDE
     Indication: ATRIAL FIBRILLATION
     Route: 048
     Dates: start: 20171208, end: 20171216
  5. RIFXIMA TABLETS 200 MG [Suspect]
     Active Substance: RIFAXIMIN
     Indication: HYPERAMMONAEMIA
     Route: 048
     Dates: start: 20171205, end: 20171216
  6. BISONO [Concomitant]
     Active Substance: BISOPROLOL
     Indication: HYPERTENSION
     Route: 062
     Dates: start: 20171205, end: 20171208

REACTIONS (3)
  - Hepatic failure [Fatal]
  - Renal failure [Fatal]
  - Epistaxis [Fatal]

NARRATIVE: CASE EVENT DATE: 20171122
